FAERS Safety Report 14933960 (Version 1)
Quarter: 2018Q2

REPORT INFORMATION
  Report Type: Spontaneous
  Country: BR (occurrence: BR)
  Receive Date: 20180524
  Receipt Date: 20180524
  Transmission Date: 20180711
  Serious: Yes (Other)
  Sender: FDA-Public Use
  Company Number: PHHY2018BR002344

PATIENT
  Age: 38 Year
  Sex: Female

DRUGS (1)
  1. OLANZAPINE. [Suspect]
     Active Substance: OLANZAPINE
     Indication: SCHIZOPHRENIA
     Route: 065

REACTIONS (7)
  - Diabetes mellitus [Recovering/Resolving]
  - Polydipsia [Recovering/Resolving]
  - Hyperphagia [Recovering/Resolving]
  - Polyuria [Recovering/Resolving]
  - Hypertriglyceridaemia [Recovering/Resolving]
  - Weight increased [Recovering/Resolving]
  - Cataract [Unknown]
